FAERS Safety Report 9688126 (Version 2)
Quarter: 2014Q2

REPORT INFORMATION
  Report Type: Spontaneous
  Country: SE (occurrence: SE)
  Receive Date: 20131114
  Receipt Date: 20140428
  Transmission Date: 20141212
  Serious: Yes (Disabling)
  Sender: FDA-Public Use
  Company Number: SE-ELI_LILLY_AND_COMPANY-SE201311002531

PATIENT
  Age: 74 Year
  Sex: Female

DRUGS (17)
  1. CYMBALTA [Suspect]
     Indication: NEURALGIA
     Dosage: 1 DF, UNKNOWN
     Route: 065
     Dates: start: 2008
  2. CYMBALTA [Suspect]
     Indication: AGITATION
  3. CYMBALTA [Suspect]
     Indication: ANXIETY
  4. LYRICA [Suspect]
     Indication: AGITATION
     Dosage: 75 DF, UNKNOWN
     Route: 065
     Dates: start: 20121227, end: 20130430
  5. LYRICA [Suspect]
     Indication: NEURALGIA
     Dosage: 75 MG, QD
  6. LYRICA [Suspect]
     Indication: ANXIETY
  7. LYRICA [Suspect]
     Indication: BACK PAIN
  8. OXYCONTIN [Concomitant]
     Indication: NEURALGIA
     Dosage: 1 DF, UNKNOWN
     Route: 065
  9. OXYCONTIN [Concomitant]
     Indication: AGITATION
  10. OXYCONTIN [Concomitant]
     Indication: ANXIETY
  11. ALVEDON [Concomitant]
     Indication: AGITATION
     Dosage: 1 DF, UNKNOWN
     Route: 065
  12. ALVEDON [Concomitant]
     Indication: NEURALGIA
  13. ALVEDON [Concomitant]
     Indication: ANXIETY
  14. DAKTACORT                          /00449501/ [Concomitant]
     Indication: PRODUCT USED FOR UNKNOWN INDICATION
     Dosage: 1 DF, UNKNOWN
     Route: 065
  15. XERODENT                           /01274201/ [Concomitant]
     Indication: PRODUCT USED FOR UNKNOWN INDICATION
     Dosage: 1 DF, UNKNOWN
     Route: 065
  16. PROPAVAN [Concomitant]
     Indication: PRODUCT USED FOR UNKNOWN INDICATION
     Dosage: 1 DF, PRN
     Route: 065
  17. STESOLID [Concomitant]
     Indication: PRODUCT USED FOR UNKNOWN INDICATION
     Dosage: 1 DF, UNKNOWN
     Route: 065

REACTIONS (23)
  - Spinal deformity [Unknown]
  - Mycotoxicosis [Unknown]
  - Immunodeficiency [Unknown]
  - Diplopia [Unknown]
  - Amnesia [Unknown]
  - Dental caries [Unknown]
  - Hearing impaired [Unknown]
  - Tooth loss [Unknown]
  - Erysipelas [Unknown]
  - Oedema peripheral [Recovered/Resolved]
  - Pain [Unknown]
  - Dyskinesia [Unknown]
  - Hyperhidrosis [Unknown]
  - Dry mouth [Unknown]
  - Fatigue [Unknown]
  - Off label use [Unknown]
  - Weight increased [Unknown]
  - Constipation [Unknown]
  - Pruritus [Unknown]
  - Fungal infection [Unknown]
  - Alopecia [Unknown]
  - Peripheral vascular disorder [Unknown]
  - Muscular weakness [Unknown]
